FAERS Safety Report 16820600 (Version 2)
Quarter: 2020Q4

REPORT INFORMATION
  Report Type: Spontaneous
  Country: FR (occurrence: FR)
  Receive Date: 20190918
  Receipt Date: 20201230
  Transmission Date: 20210113
  Serious: Yes (Hospitalization)
  Sender: FDA-Public Use
  Company Number: FR-TEVA-2019-FR-1108195

PATIENT
  Age: 30 Year
  Sex: Male
  Weight: 101 kg

DRUGS (11)
  1. LEVOTHYROX 125 MICROGRAMMES, COMPRIME SECABLE [Concomitant]
     Active Substance: LEVOTHYROXINE SODIUM
     Indication: HYPOTHYROIDISM
     Dosage: 1 DOSAGE FORMS
     Route: 048
  2. SERESTA [Concomitant]
     Active Substance: OXAZEPAM
     Indication: ANXIETY
     Dosage: 60 MG
     Route: 048
  3. FUROSEMIDE. [Suspect]
     Active Substance: FUROSEMIDE
     Indication: POLYURIA
     Dosage: 40 MG
     Route: 048
     Dates: start: 20190627, end: 20190802
  4. SPIRONOLACTONE. [Suspect]
     Active Substance: SPIRONOLACTONE
     Indication: VARICES OESOPHAGEAL
     Dosage: 150 MG
     Route: 048
     Dates: start: 20190627, end: 20190730
  5. CARVEDILOL. [Concomitant]
     Active Substance: CARVEDILOL
     Indication: PROPHYLAXIS
     Dosage: 12.5 MG
     Route: 048
     Dates: start: 20190730, end: 20190730
  6. LANSOPRAZOLE. [Suspect]
     Active Substance: LANSOPRAZOLE
     Indication: PROPHYLAXIS
     Dosage: 30 MG
     Route: 048
     Dates: start: 20190621, end: 20190801
  7. NEFOPAM (CHLORHYDRATE DE) [Suspect]
     Active Substance: NEFOPAM HYDROCHLORIDE
     Indication: PAIN
     Dosage: 20 MG
     Route: 048
     Dates: end: 20190730
  8. VITAMINE B1 [Concomitant]
     Active Substance: THIAMINE HYDROCHLORIDE
     Indication: VITAMIN B1 DEFICIENCY
     Dosage: 1 DOSAGE FORMS
     Route: 048
     Dates: start: 201906
  9. CEFTRIAXONE BASE [Concomitant]
     Active Substance: CEFTRIAXONE
     Dosage: 1 GRAM
     Route: 048
     Dates: start: 20190622, end: 20190701
  10. VITAMIN B6 [Concomitant]
     Active Substance: PYRIDOXINE HYDROCHLORIDE
     Indication: VITAMIN B6 DEFICIENCY
     Dosage: 1 DOSAGE FORMS
     Route: 048
     Dates: start: 201906
  11. LACTULOSE. [Concomitant]
     Active Substance: LACTULOSE
     Indication: HEPATIC ENCEPHALOPATHY PROPHYLAXIS
     Dosage: 3 DOSAGE FORMS
     Route: 048
     Dates: start: 201906, end: 20190803

REACTIONS (1)
  - Toxic skin eruption [Recovered/Resolved]

NARRATIVE: CASE EVENT DATE: 20190725
